FAERS Safety Report 9742808 (Version 1)
Quarter: 2013Q4

REPORT INFORMATION
  Report Type: Spontaneous
  Country: US (occurrence: US)
  Receive Date: 20131210
  Receipt Date: 20131210
  Transmission Date: 20140711
  Serious: No
  Sender: FDA-Public Use
  Company Number: US-JNJFOC-20131117397

PATIENT
  Age: 76 Year
  Sex: Female

DRUGS (2)
  1. SANDOZ FENTANYL TRANSDERMAL SYSTEM [Suspect]
     Indication: PAIN IN EXTREMITY
     Route: 062
     Dates: start: 20131126
  2. SANDOZ FENTANYL TRANSDERMAL SYSTEM [Suspect]
     Indication: ARTHRALGIA
     Route: 062
     Dates: start: 20131126

REACTIONS (2)
  - Drug administered at inappropriate site [Recovered/Resolved]
  - Product quality issue [Unknown]
